FAERS Safety Report 7706178-6 (Version None)
Quarter: 2011Q3

REPORT INFORMATION
  Report Type: 
  Country: None (occurrence: None)
  Receive Date: 20110824
  Receipt Date: 20110815
  Transmission Date: 20111222
  Serious: Yes (Death, Hospitalization, Other)
  Sender: FDA-Public Use
  Company Number: FR-ELI_LILLY_AND_COMPANY-FR201108004947

PATIENT
  Age: 66 Year
  Sex: Male

DRUGS (2)
  1. PEMETREXED [Suspect]
     Indication: LUNG ADENOCARCINOMA
  2. CARBOPLATIN [Concomitant]

REACTIONS (11)
  - GENERAL PHYSICAL HEALTH DETERIORATION [None]
  - LACTIC ACIDOSIS [None]
  - DIARRHOEA [None]
  - PANCYTOPENIA [None]
  - TOXICITY TO VARIOUS AGENTS [None]
  - VASCULITIS [None]
  - RENAL FAILURE ACUTE [None]
  - SEPSIS [None]
  - MULTI-ORGAN FAILURE [None]
  - COLITIS [None]
  - ABDOMINAL PAIN [None]
